FAERS Safety Report 9926415 (Version 1)
Quarter: 2014Q1

REPORT INFORMATION
  Report Type: Spontaneous
  Country: US (occurrence: US)
  Receive Date: 20140226
  Receipt Date: 20140226
  Transmission Date: 20141002
  Serious: No
  Sender: FDA-Public Use
  Company Number: US-AMGEN-USASP2013068912

PATIENT
  Age: 48 Year
  Sex: Female

DRUGS (7)
  1. ENBREL [Suspect]
     Indication: PRODUCT USED FOR UNKNOWN INDICATION
     Dosage: 50 MG, QWK
     Route: 058
  2. OMEPRAZOLE [Concomitant]
     Dosage: 40 MG, UNK
  3. FISH OIL [Concomitant]
     Dosage: UNK
  4. VITAMIN D3 [Concomitant]
     Dosage: 2000 UNIT, UNK
  5. VITAMIN B COMPLEX [Concomitant]
     Dosage: UNK
  6. PROBIOTICS [Concomitant]
     Dosage: UNK
  7. ARAVA [Concomitant]
     Dosage: 10 MG, UNK

REACTIONS (3)
  - Condition aggravated [Unknown]
  - Local swelling [Unknown]
  - Arthralgia [Unknown]
